FAERS Safety Report 7703213-6 (Version None)
Quarter: 2011Q3

REPORT INFORMATION
  Report Type: 
  Country: None (occurrence: None)
  Receive Date: 20110823
  Receipt Date: 20110808
  Transmission Date: 20111222
  Serious: Yes (Death)
  Sender: FDA-Public Use
  Company Number: JP-PFIZER INC-2010045158

PATIENT
  Age: 57 Year
  Sex: Male

DRUGS (9)
  1. ANTITHROMBIN III [Concomitant]
     Route: 042
  2. MORPHINE HYDROCHLORIDE [Concomitant]
     Route: 042
  3. NOVO HEPARIN [Concomitant]
     Dosage: UNK
     Route: 051
  4. CIPROFLOXACIN HCL [Concomitant]
     Route: 042
  5. FOSMICIN S [Concomitant]
     Route: 042
  6. CEFTAZIDIME SODIUM [Concomitant]
     Route: 042
  7. ARGATROBAN [Suspect]
     Indication: HEPARIN-INDUCED THROMBOCYTOPENIA
     Dosage: UNK
     Route: 041
     Dates: start: 20100330, end: 20100402
  8. PROPOFOL [Concomitant]
     Route: 042
  9. FOY [Concomitant]
     Route: 042

REACTIONS (3)
  - DISEASE PROGRESSION [None]
  - PNEUMONIA [None]
  - LUNG NEOPLASM MALIGNANT [None]
